FAERS Safety Report 8420489-0 (Version None)
Quarter: 2012Q2

REPORT INFORMATION
  Report Type: 
  Country: None (occurrence: None)
  Receive Date: 20120608
  Receipt Date: 20120530
  Transmission Date: 20120825
  Serious: Yes (Other)
  Sender: FDA-Public Use
  Company Number: US-ASTRAZENECA-2012SE16854

PATIENT
  Age: 59 Year
  Sex: Female
  Weight: 83 kg

DRUGS (39)
  1. POTASSIUM [Concomitant]
  2. ALBUTEROL SULFATE [Concomitant]
     Dosage: 0.083%ML AS NEEDED
  3. GLIMEPIRIDE [Concomitant]
  4. HYDROCODONE BITARTRATE AND ACETAMINOPHEN [Concomitant]
     Dosage: 5/500
     Dates: start: 20081128
  5. FLUCONAZOLE [Concomitant]
     Dates: start: 20090212
  6. EXFORGE [Concomitant]
     Dates: start: 20100902
  7. ATENOLOL [Concomitant]
     Indication: HYPERTENSION
  8. ATENOLOL [Concomitant]
     Dates: start: 20090407
  9. ACETAMINOPHEN [Concomitant]
     Dosage: 2 30 500 MG AS DIRECTED
  10. LISINOPRIL [Concomitant]
     Dates: start: 20081205
  11. IBUPROFEN [Concomitant]
     Dates: start: 20100902
  12. METRONIDAZOLE [Concomitant]
     Dates: start: 20090218
  13. ALENDRONATE SODIUM [Concomitant]
     Dosage: 70 MG 1 TABLET ONCE A WEEK
     Dates: start: 20100902
  14. VITAMIN E [Concomitant]
     Dosage: 1000 UNIT 3 PILLS DAILY
  15. ZYRTEC-D 12 HOUR [Concomitant]
     Indication: MULTIPLE ALLERGIES
     Dosage: 5-120 MG ONCE A DAY
     Dates: start: 20100902
  16. ZOFRAN ODT [Concomitant]
  17. CLONAZEPAM [Concomitant]
  18. NEXIUM [Suspect]
     Indication: GASTROOESOPHAGEAL REFLUX DISEASE
     Route: 048
     Dates: start: 20090101, end: 20110101
  19. ROLAIDS [Concomitant]
  20. MECLIZINE HCL [Concomitant]
  21. CITALOPRAM HYDROBROMIDE [Concomitant]
     Dates: start: 20081128
  22. BENADRYL [Concomitant]
     Dates: start: 20100902
  23. MAXAZIDE [Concomitant]
     Indication: HYPERTENSION
  24. NEXIUM [Suspect]
     Route: 048
     Dates: start: 20090519
  25. NEXIUM [Suspect]
     Route: 048
     Dates: start: 20110101
  26. ATENOLOL [Concomitant]
     Dates: start: 20100902
  27. ASPIRIN [Concomitant]
  28. ESTRADERM [Concomitant]
     Dates: start: 20081208
  29. LEVAQUIN [Concomitant]
     Dates: start: 20080918
  30. NASONEX [Concomitant]
  31. NEXIUM [Suspect]
     Route: 048
     Dates: start: 20100902
  32. EXFORGE HCT [Concomitant]
     Indication: HYPERTENSION
     Dosage: 10-160-12.5MG ONCE A DAY
     Dates: start: 20100902
  33. IBUPROFEN [Concomitant]
     Dates: start: 20080826
  34. CARISOPRODOL [Concomitant]
     Dates: start: 20090203
  35. ADVAIR DISKUS 100/50 [Concomitant]
     Dosage: 250-50 MCG/DOSE 1 EVERY 12 HOURS
     Dates: start: 20100902
  36. SIMVASTATION [Concomitant]
     Indication: HYPERLIPIDAEMIA
     Dates: start: 20100101
  37. ZYRTEC-D 12 HOUR [Concomitant]
     Indication: NASAL CONGESTION
     Dosage: 5-120 MG ONCE A DAY
     Dates: start: 20100902
  38. ESTRADERM [Concomitant]
     Dosage: 0.05MG ONE 24-HOUR PATCH TO SKIN A DAY
     Dates: start: 20100902
  39. CIPRO HC [Concomitant]

REACTIONS (11)
  - ANXIETY [None]
  - DEPRESSION [None]
  - CEREBROVASCULAR ACCIDENT [None]
  - VITAMIN D DEFICIENCY [None]
  - VERTIGO [None]
  - OSTEOPOROSIS [None]
  - CARDIAC DISORDER [None]
  - OSTEOARTHRITIS [None]
  - MIGRAINE [None]
  - TRANSIENT ISCHAEMIC ATTACK [None]
  - FOOT FRACTURE [None]
